FAERS Safety Report 5494123-6 (Version None)
Quarter: 2007Q4

REPORT INFORMATION
  Report Type: 
  Country: None (occurrence: None)
  Receive Date: 20071022
  Receipt Date: 20071013
  Transmission Date: 20080405
  Serious: Yes (Life-Threatening)
  Sender: FDA-Public Use
  Company Number: CLOF-10706

PATIENT
  Age: 67 Year
  Sex: Male

DRUGS (1)
  1. CLOFARABINE. MFR: GENZYME [Suspect]
     Indication: ACUTE MYELOID LEUKAEMIA
     Dosage: 62.7 MG QD IV
     Route: 042
     Dates: start: 20071012, end: 20071013

REACTIONS (4)
  - ACUTE MYOCARDIAL INFARCTION [None]
  - CORONARY ARTERY DISEASE [None]
  - LIPASE INCREASED [None]
  - SINUS TACHYCARDIA [None]
